FAERS Safety Report 9297007 (Version 2)
Quarter: 2013Q2

REPORT INFORMATION
  Report Type: Spontaneous
  Country: JP (occurrence: JP)
  Receive Date: 20130519
  Receipt Date: 20130524
  Transmission Date: 20140414
  Serious: Yes (Hospitalization, Other)
  Sender: FDA-Public Use
  Company Number: JP-BRISTOL-MYERS SQUIBB COMPANY-18884494

PATIENT
  Age: 68 Year
  Sex: Male

DRUGS (2)
  1. AVAPRO [Suspect]
     Indication: HYPERTENSION
     Route: 048
     Dates: start: 2012
  2. BAYASPIRIN [Concomitant]
     Route: 048

REACTIONS (2)
  - Asthenia [Unknown]
  - Nasopharyngitis [Unknown]
